FAERS Safety Report 8503347-2 (Version None)
Quarter: 2012Q3

REPORT INFORMATION
  Report Type: 
  Country: None (occurrence: None)
  Receive Date: 20120702
  Receipt Date: 20120618
  Transmission Date: 20120928
  Serious: Yes (Hospitalization, Other)
  Sender: FDA-Public Use
  Company Number: US-JNJFOC-20120610868

PATIENT
  Sex: Male
  Weight: 86 kg

DRUGS (1)
  1. DECITABINE [Suspect]
     Indication: ACUTE MYELOID LEUKAEMIA
     Dosage: 20 MG/M2, INTRAVENOUS
     Route: 042
     Dates: start: 20120227, end: 20120307

REACTIONS (15)
  - HYPOPHOSPHATAEMIA [None]
  - UPPER RESPIRATORY TRACT INFECTION [None]
  - LYMPHOCYTE COUNT DECREASED [None]
  - WHITE BLOOD CELL COUNT DECREASED [None]
  - PLATELET COUNT DECREASED [None]
  - SEPSIS [None]
  - EPISTAXIS [None]
  - SKIN INFECTION [None]
  - FEBRILE NEUTROPENIA [None]
  - HYPOALBUMINAEMIA [None]
  - AXILLARY MASS [None]
  - SERRATIA INFECTION [None]
  - ANAEMIA [None]
  - PNEUMONIA PRIMARY ATYPICAL [None]
  - PNEUMONIA FUNGAL [None]
